FAERS Safety Report 10757314 (Version 1)
Quarter: 2015Q1

REPORT INFORMATION
  Report Type: Spontaneous
  Country: CA (occurrence: None)
  Receive Date: 20150130
  Receipt Date: 20150130
  Transmission Date: 20150721
  Serious: Yes (Other)
  Sender: FDA-Public Use
  Company Number: UCM201501-000044

PATIENT
  Age: 67 Year
  Sex: Female

DRUGS (1)
  1. HYDROCHLOROTHIAZIDE. [Suspect]
     Active Substance: HYDROCHLOROTHIAZIDE

REACTIONS (4)
  - Angle closure glaucoma [None]
  - Nausea [None]
  - Choroidal effusion [None]
  - Hyponatraemia [None]
